FAERS Safety Report 23829001 (Version 1)
Quarter: 2024Q2

REPORT INFORMATION
  Report Type: Spontaneous
  Country: US (occurrence: US)
  Receive Date: 20240508
  Receipt Date: 20240508
  Transmission Date: 20240716
  Serious: No
  Sender: FDA-Public Use
  Company Number: US-UCBSA-2023020631

PATIENT
  Sex: Female

DRUGS (16)
  1. CIMZIA [Suspect]
     Active Substance: CERTOLIZUMAB PEGOL
     Indication: Illness
     Dosage: 200 MILLIGRAM, EV 2 WEEKS(QOW)
     Route: 058
  2. .ALPHA.-TOCOPHEROL [Concomitant]
     Active Substance: .ALPHA.-TOCOPHEROL
     Indication: Product used for unknown indication
     Dosage: 100 UNIT
  3. VITAMIN D3 [Concomitant]
     Active Substance: CHOLECALCIFEROL
     Indication: Product used for unknown indication
     Dosage: 1250 MICROGRAM
  4. VITAMIN B COMPLEX [Concomitant]
     Active Substance: CYANOCOBALAMIN\DEXPANTHENOL\NIACINAMIDE\PYRIDOXINE HYDROCHLORIDE\RIBOFLAVIN 5^-PHOSPHATE SODIUM\THIA
     Indication: Product used for unknown indication
     Dosage: UNK
  5. TYLENOL [Concomitant]
     Active Substance: ACETAMINOPHEN
     Indication: Product used for unknown indication
     Dosage: 325 MILLIGRAM
  6. OYSTER SHELL CALCIUM + D3 [Concomitant]
     Indication: Product used for unknown indication
     Dosage: UNK
  7. ORAZINC [ZINC SULFATE] [Concomitant]
     Indication: Product used for unknown indication
     Dosage: 50(220) MG
  8. LORATADINE [Concomitant]
     Active Substance: LORATADINE
     Indication: Product used for unknown indication
     Dosage: 10 MILLIGRAM
  9. GLUCOSAMINE + CHONDORITIN [Concomitant]
     Indication: Product used for unknown indication
     Dosage: UNK
  10. FISH OIL [Concomitant]
     Active Substance: FISH OIL
     Indication: Product used for unknown indication
     Dosage: 300-400 MG
  11. COENZYME Q10 [Concomitant]
     Active Substance: DIETARY SUPPLEMENT\UBIDECARENONE
     Indication: Product used for unknown indication
     Dosage: 100 MILLIGRAM
  12. COLLAGEN [Concomitant]
     Active Substance: COLLAGEN
     Indication: Product used for unknown indication
     Dosage: 125-740 MG
  13. ALLERGY RELIEF [LORATADINE] [Concomitant]
     Indication: Product used for unknown indication
     Dosage: 25 MILLIGRAM
  14. ADVIL [Concomitant]
     Active Substance: IBUPROFEN
     Indication: Product used for unknown indication
     Dosage: 200 MILLIGRAM
  15. ACID REDUCER [CIMETIDINE] [Concomitant]
     Indication: Product used for unknown indication
     Dosage: 200 MILLIGRAM
  16. DAILY-VITE [Concomitant]
     Indication: Product used for unknown indication
     Dosage: 400 MICROGRAM

REACTIONS (1)
  - Hypersensitivity [Unknown]
